FAERS Safety Report 7327734-3 (Version None)
Quarter: 2011Q1

REPORT INFORMATION
  Report Type: 
  Country: None (occurrence: None)
  Receive Date: 20110303
  Receipt Date: 20110222
  Transmission Date: 20110831
  Serious: Yes (Death, Hospitalization)
  Sender: FDA-Public Use
  Company Number: JP-BAYER-201015324BYL

PATIENT
  Sex: Male

DRUGS (9)
  1. NEXAVAR [Suspect]
     Dosage: DAILY DOSE 600 MG
     Route: 048
     Dates: start: 20101025, end: 20101114
  2. CRAVIT [Suspect]
     Indication: BRONCHITIS
     Dosage: 500 MG, QD
     Dates: start: 20101226, end: 20101227
  3. URSO 250 [Concomitant]
     Indication: HEPATITIS
     Dosage: DAILY DOSE 150 MG
     Route: 048
     Dates: start: 20081020, end: 20110114
  4. NEXAVAR [Suspect]
     Dosage: DAILY DOSE 400 MG
     Route: 048
     Dates: start: 20101115, end: 20101226
  5. GLYCYRON [Concomitant]
     Indication: HEPATITIS
     Dosage: DAILY DOSE 3 DF
     Route: 048
     Dates: start: 20081020, end: 20110114
  6. DOGMATYL [Concomitant]
     Dosage: DAILY DOSE 150 MG
     Route: 048
     Dates: start: 20101129, end: 20101226
  7. TAKEPRON [Concomitant]
     Indication: GASTRIC ULCER
     Dosage: DAILY DOSE 15 MG
     Route: 048
     Dates: start: 20090908, end: 20110114
  8. NEXAVAR [Suspect]
     Indication: HEPATIC NEOPLASM MALIGNANT
     Dosage: 200 MG, BID
     Route: 048
     Dates: start: 20101012, end: 20101024
  9. LIVACT [Concomitant]
     Indication: HYPOALBUMINAEMIA
     Dosage: DAILY DOSE 2 DF
     Route: 048
     Dates: start: 20101012, end: 20110110

REACTIONS (4)
  - HEPATIC NEOPLASM MALIGNANT [None]
  - ERYTHEMA [None]
  - BRONCHITIS [None]
  - HEPATIC FUNCTION ABNORMAL [None]
